FAERS Safety Report 7957957-1 (Version None)
Quarter: 2011Q4

REPORT INFORMATION
  Report Type: 
  Country: None (occurrence: None)
  Receive Date: 20111205
  Receipt Date: 20111128
  Transmission Date: 20120403
  Serious: Yes (Other)
  Sender: FDA-Public Use
  Company Number: US-ASTRAZENECA-2011SE72408

PATIENT
  Age: 34 Year
  Sex: Female

DRUGS (1)
  1. PULMICORT [Suspect]
     Dosage: 0.25 MG 2CC
     Route: 055

REACTIONS (1)
  - NEAR DROWNING [None]
